FAERS Safety Report 5613324-7 (Version None)
Quarter: 2008Q1

REPORT INFORMATION
  Report Type: 
  Country: None (occurrence: None)
  Receive Date: 20080129
  Receipt Date: 20080121
  Transmission Date: 20080703
  Serious: Yes (Other)
  Sender: FDA-Public Use
  Company Number: 2008BI000726

PATIENT
  Sex: 0

DRUGS (2)
  1. ZEVALIN [Suspect]
     Indication: B-CELL LYMPHOMA
     Dosage: 56 MBQ/KG; IV
     Route: 042
  2. RITUXIMAB [Concomitant]

REACTIONS (14)
  - DRUG TOXICITY [None]
  - FEBRILE NEUTROPENIA [None]
  - HAEMATOTOXICITY [None]
  - HEPATIC FAILURE [None]
  - HEPATITIS C VIRUS [None]
  - HEPATOTOXICITY [None]
  - MYELODYSPLASTIC SYNDROME [None]
  - NEUTROPENIA [None]
  - PLATELET COUNT DECREASED [None]
  - PNEUMONIA BACTERIAL [None]
  - REFRACTORY ANAEMIA [None]
  - REFRACTORY ANAEMIA WITH AN EXCESS OF BLASTS [None]
  - THROMBOCYTOPENIA [None]
  - WHITE BLOOD CELL COUNT DECREASED [None]
